FAERS Safety Report 7228108-6 (Version None)
Quarter: 2011Q1

REPORT INFORMATION
  Report Type: 
  Country: None (occurrence: None)
  Receive Date: 20110114
  Receipt Date: 20100325
  Transmission Date: 20110831
  Serious: Yes (Other)
  Sender: FDA-Public Use
  Company Number: US-PFIZER INC-2010039551

PATIENT
  Sex: Female

DRUGS (1)
  1. DOSTINEX [Suspect]
     Indication: RESTLESS LEGS SYNDROME
     Dosage: UNK
     Route: 048

REACTIONS (1)
  - CARDIAC VALVE DISEASE [None]
